FAERS Safety Report 4552721-8 (Version None)
Quarter: 2005Q1

REPORT INFORMATION
  Report Type: 
  Country: None (occurrence: None)
  Receive Date: 20050114
  Receipt Date: 20050105
  Transmission Date: 20050727
  Serious: Yes (Hospitalization)
  Sender: FDA-Public Use
  Company Number: US-AMGEN-US106208

PATIENT
  Sex: Female
  Weight: 95.6 kg

DRUGS (13)
  1. NEULASTA [Suspect]
     Indication: CHEMOTHERAPY
     Route: 058
     Dates: start: 20041016, end: 20041217
  2. CIMETIDINE [Suspect]
     Dates: start: 20041216, end: 20041216
  3. PACLITAXEL [Suspect]
     Dates: start: 20041216, end: 20041216
  4. IMITREX [Concomitant]
  5. NEXIUM [Concomitant]
  6. MIRALAX [Concomitant]
  7. DULCOLAX [Concomitant]
  8. PERCOCET [Concomitant]
     Dates: start: 20041026
  9. AMBIEN [Concomitant]
     Dates: start: 20041026
  10. COUMADIN [Concomitant]
  11. XANAX [Concomitant]
     Dates: start: 20041129
  12. DECADRON [Concomitant]
  13. BENADRYL [Concomitant]

REACTIONS (4)
  - ACUTE RESPIRATORY DISTRESS SYNDROME [None]
  - CONSTIPATION [None]
  - LEUKOCYTOSIS [None]
  - PYREXIA [None]
